FAERS Safety Report 5878865-6 (Version None)
Quarter: 2008Q3

REPORT INFORMATION
  Report Type: 
  Country: None (occurrence: None)
  Receive Date: 20080910
  Receipt Date: 20080828
  Transmission Date: 20090109
  Serious: No
  Sender: FDA-Public Use
  Company Number: SPI200800440

PATIENT
  Age: 80 Year
  Sex: Female
  Weight: 59 kg

DRUGS (10)
  1. AMITIZA [Suspect]
     Indication: CONSTIPATION
     Dosage: 24 MCG, BID, ORAL
     Route: 048
     Dates: start: 20080710, end: 20080801
  2. AMITIZA [Suspect]
     Indication: IRRITABLE BOWEL SYNDROME
     Dosage: 24 MCG, BID, ORAL
     Route: 048
     Dates: start: 20080710, end: 20080801
  3. ASPIRIN [Concomitant]
  4. PREVACID [Concomitant]
  5. PRAVACHOL [Concomitant]
  6. XANAX [Concomitant]
  7. OXYCODONE HCL [Concomitant]
  8. MIRALAX [Concomitant]
  9. MYLANTA [Concomitant]
  10. ACTONEL [Concomitant]

REACTIONS (5)
  - ABDOMINAL PAIN UPPER [None]
  - CHEST PAIN [None]
  - CYSTITIS [None]
  - DRUG INEFFECTIVE [None]
  - MALAISE [None]
